FAERS Safety Report 5891099-4 (Version None)
Quarter: 2008Q3

REPORT INFORMATION
  Report Type: 
  Country: None (occurrence: None)
  Receive Date: 20080922
  Receipt Date: 20080918
  Transmission Date: 20090109
  Serious: Yes (Other)
  Sender: FDA-Public Use
  Company Number: A0705030A

PATIENT
  Age: 36 Year
  Sex: Female

DRUGS (4)
  1. ALLI [Suspect]
     Indication: WEIGHT LOSS DIET
     Route: 048
     Dates: start: 20080120
  2. LACTASE ENZYME [Concomitant]
  3. DICYCLOMINE [Concomitant]
  4. ALBUTEROL [Concomitant]

REACTIONS (17)
  - ABDOMINAL PAIN UPPER [None]
  - ADVERSE EVENT [None]
  - ANXIETY [None]
  - ARTHRITIS [None]
  - CRYING [None]
  - DECREASED APPETITE [None]
  - DRUG INEFFECTIVE [None]
  - FATIGUE [None]
  - GASTROENTERITIS VIRAL [None]
  - GASTROINTESTINAL DISORDER [None]
  - HOT FLUSH [None]
  - HUNGER [None]
  - HYPERPHAGIA [None]
  - MALAISE [None]
  - MENORRHAGIA [None]
  - MUSCULOSKELETAL DISORDER [None]
  - WEIGHT INCREASED [None]
